FAERS Safety Report 7488346-4 (Version None)
Quarter: 2011Q2

REPORT INFORMATION
  Report Type: 
  Country: None (occurrence: None)
  Receive Date: 20110518
  Receipt Date: 20110504
  Transmission Date: 20111010
  Serious: Yes (Death)
  Sender: FDA-Public Use
  Company Number: GB-JNJFOC-20110502567

PATIENT
  Age: 46 Year
  Sex: Male
  Weight: 68 kg

DRUGS (2)
  1. INFLIXIMAB, RECOMBINANT [Suspect]
     Indication: PSORIATIC ARTHROPATHY
     Route: 042
     Dates: start: 20030801
  2. AZATHIOPRINE [Concomitant]
     Dates: start: 20030801

REACTIONS (2)
  - EPILEPSY [None]
  - HYPERTENSION [None]
